FAERS Safety Report 23180527 (Version 1)
Quarter: 2023Q4

REPORT INFORMATION
  Report Type: Spontaneous
  Country: US (occurrence: US)
  Receive Date: 20231114
  Receipt Date: 20231114
  Transmission Date: 20240110
  Serious: Yes (Other)
  Sender: FDA-Public Use
  Company Number: US-AUROBINDO-AUR-APL-2023-068075

PATIENT
  Age: 72 Year
  Sex: Female

DRUGS (4)
  1. CLOBETASOL PROPIONATE [Suspect]
     Active Substance: CLOBETASOL PROPIONATE
     Indication: Pityriasis rubra pilaris
     Dosage: UNK UNK, TWO TIMES A DAY
     Route: 061
  2. HYDROCORTISONE [Suspect]
     Active Substance: HYDROCORTISONE
     Indication: Pityriasis rubra pilaris
     Dosage: UNK
     Route: 061
  3. TRIAMCINOLONE [Suspect]
     Active Substance: TRIAMCINOLONE
     Indication: Pityriasis rubra pilaris
     Dosage: UNK
     Route: 061
  4. ACITRETIN [Concomitant]
     Active Substance: ACITRETIN
     Indication: Pityriasis rubra pilaris
     Dosage: 25 MILLIGRAM, DAILY
     Route: 065

REACTIONS (1)
  - Drug ineffective [Unknown]
